FAERS Safety Report 18696430 (Version 1)
Quarter: 2021Q1

REPORT INFORMATION
  Report Type: Report from Study
  Country: SE (occurrence: SE)
  Receive Date: 20210104
  Receipt Date: 20210104
  Transmission Date: 20210419
  Serious: Yes (Other)
  Sender: FDA-Public Use
  Company Number: SE-TAKEDA-SE202033947

PATIENT

DRUGS (46)
  1. TEDUGLUTIDE [Suspect]
     Active Substance: TEDUGLUTIDE
     Indication: SHORT-BOWEL SYNDROME
     Dosage: 1.7 MILLIGRAM (0.02 MILLIGRAM/KILOGRAM DAILY DOSE, 7 DOSES PER WEEK)
     Route: 065
     Dates: start: 20191029, end: 20191029
  2. TEDUGLUTIDE [Suspect]
     Active Substance: TEDUGLUTIDE
     Dosage: 2 MILLIGRAM (0.03 MILLIGRAM/KILOGRAM DAILY DOSE, 7 DOSES PER WEEK)
     Route: 065
     Dates: start: 20191101, end: 20191101
  3. TEDUGLUTIDE [Suspect]
     Active Substance: TEDUGLUTIDE
     Dosage: 2 MILLIGRAM (0.03 MILLIGRAM/KILOGRAM DAILY DOSE, 7 DOSES PER WEEK)
     Route: 065
     Dates: start: 20191101, end: 20191101
  4. TEDUGLUTIDE [Suspect]
     Active Substance: TEDUGLUTIDE
     Dosage: 2.4 MILLIGRAM (0.04 MILLIGRAM/KILOGRAM DAILY DOSE, 7 DOSES PER WEEK)
     Route: 065
     Dates: start: 20191102, end: 20191102
  5. TEDUGLUTIDE [Suspect]
     Active Substance: TEDUGLUTIDE
     Dosage: 2.4 MILLIGRAM (0.04 MILLIGRAM/KILOGRAM DAILY DOSE, 7 DOSES PER WEEK)
     Route: 065
     Dates: start: 20191103, end: 20191103
  6. TEDUGLUTIDE [Suspect]
     Active Substance: TEDUGLUTIDE
     Dosage: 3.4 MILLIGRAM (0.05 MILLIGRAM/KILOGRAM DAILY DOSE, 7 DOSES PER WEEK)
     Route: 065
     Dates: start: 20191106
  7. TEDUGLUTIDE [Suspect]
     Active Substance: TEDUGLUTIDE
     Dosage: 3.4 MILLIGRAM (0.05 MILLIGRAM/KILOGRAM DAILY DOSE, 7 DOSES PER WEEK)
     Route: 065
     Dates: start: 20191106
  8. TEDUGLUTIDE [Suspect]
     Active Substance: TEDUGLUTIDE
     Dosage: 2.4 MILLIGRAM (0.04 MILLIGRAM/KILOGRAM DAILY DOSE, 7 DOSES PER WEEK)
     Route: 065
     Dates: start: 20191103, end: 20191103
  9. TEDUGLUTIDE [Suspect]
     Active Substance: TEDUGLUTIDE
     Dosage: 2.9 MILLIGRAM (0.04 MILLIGRAM/KILOGRAM DAILY DOSE, 7 DOSES PER WEEK)
     Route: 065
     Dates: start: 20191105, end: 20191105
  10. TEDUGLUTIDE [Suspect]
     Active Substance: TEDUGLUTIDE
     Dosage: 2.9 MILLIGRAM (0.04 MILLIGRAM/KILOGRAM DAILY DOSE, 7 DOSES PER WEEK)
     Route: 065
     Dates: start: 20191105, end: 20191105
  11. AMLODIPINE [Concomitant]
     Active Substance: AMLODIPINE BESYLATE
     Indication: HYPERTENSION
  12. COCILLANA?ETYFIN [ETHYLMORPHINE HYDROCHLORIDE;GUAREA GUIDONIA;POLYGALA [Concomitant]
     Active Substance: ETHYLMORPHINE HYDROCHLORIDE\HERBALS
     Indication: SUSPECTED COVID-19
  13. SELOKENZOC [Concomitant]
     Active Substance: METOPROLOL SUCCINATE
     Indication: HYPERTENSION
  14. TEDUGLUTIDE [Suspect]
     Active Substance: TEDUGLUTIDE
     Dosage: 2 MILLIGRAM (0.03 MILLIGRAM/KILOGRAM DAILY DOSE, 7 DOSES PER WEEK)
     Route: 065
     Dates: start: 20191031, end: 20191031
  15. TEDUGLUTIDE [Suspect]
     Active Substance: TEDUGLUTIDE
     Dosage: 2.4 MILLIGRAM (0.04 MILLIGRAM/KILOGRAM DAILY DOSE, 7 DOSES PER WEEK)
     Route: 065
     Dates: start: 20191102, end: 20191102
  16. RESONIUM [Concomitant]
     Active Substance: SODIUM POLYSTYRENE SULFONATE
     Indication: HYPERKALAEMIA
  17. TEDUGLUTIDE [Suspect]
     Active Substance: TEDUGLUTIDE
     Indication: SHORT-BOWEL SYNDROME
     Dosage: 1.7 MILLIGRAM (0.02 MILLIGRAM/KILOGRAM DAILY DOSE, 7 DOSES PER WEEK)
     Route: 065
     Dates: start: 20191029, end: 20191029
  18. TEDUGLUTIDE [Suspect]
     Active Substance: TEDUGLUTIDE
     Indication: SHORT-BOWEL SYNDROME
     Dosage: 1.7 MILLIGRAM (0.02 MILLIGRAM/KILOGRAM DAILY DOSE, 7 DOSES PER WEEK)
     Route: 065
     Dates: start: 20191029, end: 20191029
  19. TEDUGLUTIDE [Suspect]
     Active Substance: TEDUGLUTIDE
     Dosage: 1.7 MILLIGRAM (0.02 MILLIGRAM/KILOGRAM DAILY DOSE, 7 DOSES PER WEEK)
     Route: 065
     Dates: start: 20191030, end: 20191030
  20. TEDUGLUTIDE [Suspect]
     Active Substance: TEDUGLUTIDE
     Dosage: 2 MILLIGRAM (0.03 MILLIGRAM/KILOGRAM DAILY DOSE, 7 DOSES PER WEEK)
     Route: 065
     Dates: start: 20191031, end: 20191031
  21. TEDUGLUTIDE [Suspect]
     Active Substance: TEDUGLUTIDE
     Dosage: 2 MILLIGRAM (0.03 MILLIGRAM/KILOGRAM DAILY DOSE, 7 DOSES PER WEEK)
     Route: 065
     Dates: start: 20191031, end: 20191031
  22. TEDUGLUTIDE [Suspect]
     Active Substance: TEDUGLUTIDE
     Dosage: 2.4 MILLIGRAM (0.04 MILLIGRAM/KILOGRAM DAILY DOSE, 7 DOSES PER WEEK)
     Route: 065
     Dates: start: 20191103, end: 20191103
  23. TEDUGLUTIDE [Suspect]
     Active Substance: TEDUGLUTIDE
     Dosage: 2.4 MILLIGRAM (0.04 MILLIGRAM/KILOGRAM DAILY DOSE, 7 DOSES PER WEEK)
     Route: 065
     Dates: start: 20191103, end: 20191103
  24. TEDUGLUTIDE [Suspect]
     Active Substance: TEDUGLUTIDE
     Dosage: 3.4 MILLIGRAM (0.05 MILLIGRAM/KILOGRAM DAILY DOSE, 7 DOSES PER WEEK)
     Route: 065
     Dates: start: 20191106
  25. TEDUGLUTIDE [Suspect]
     Active Substance: TEDUGLUTIDE
     Dosage: 3.4 MILLIGRAM (0.05 MILLIGRAM/KILOGRAM DAILY DOSE, 7 DOSES PER WEEK)
     Route: 065
     Dates: start: 20191106
  26. D3?VICOTRAT [Concomitant]
     Indication: VITAMIN D DEFICIENCY
  27. TEDUGLUTIDE [Suspect]
     Active Substance: TEDUGLUTIDE
     Dosage: 2 MILLIGRAM (0.03 MILLIGRAM/KILOGRAM DAILY DOSE, 7 DOSES PER WEEK)
     Route: 065
     Dates: start: 20191101, end: 20191101
  28. TEDUGLUTIDE [Suspect]
     Active Substance: TEDUGLUTIDE
     Dosage: 2.4 MILLIGRAM (0.04 MILLIGRAM/KILOGRAM DAILY DOSE, 7 DOSES PER WEEK)
     Route: 065
     Dates: start: 20191102, end: 20191102
  29. TEDUGLUTIDE [Suspect]
     Active Substance: TEDUGLUTIDE
     Dosage: 2.9 MILLIGRAM (0.04 MILLIGRAM/KILOGRAM DAILY DOSE, 7 DOSES PER WEEK)
     Route: 065
     Dates: start: 20191104, end: 20191104
  30. TEDUGLUTIDE [Suspect]
     Active Substance: TEDUGLUTIDE
     Indication: SHORT-BOWEL SYNDROME
     Dosage: 1.7 MILLIGRAM (0.02 MILLIGRAM/KILOGRAM DAILY DOSE, 7 DOSES PER WEEK)
     Route: 065
     Dates: start: 20191029, end: 20191029
  31. TEDUGLUTIDE [Suspect]
     Active Substance: TEDUGLUTIDE
     Dosage: 1.7 MILLIGRAM (0.02 MILLIGRAM/KILOGRAM DAILY DOSE, 7 DOSES PER WEEK)
     Route: 065
     Dates: start: 20191030, end: 20191030
  32. TEDUGLUTIDE [Suspect]
     Active Substance: TEDUGLUTIDE
     Dosage: 2.9 MILLIGRAM (0.04 MILLIGRAM/KILOGRAM DAILY DOSE, 7 DOSES PER WEEK)
     Route: 065
     Dates: start: 20191104, end: 20191104
  33. KETOGAN NOVUM [Concomitant]
     Active Substance: KETOBEMIDONE HYDROCHLORIDE
     Indication: NEPHROLITHIASIS
  34. PRIMPERAN [Concomitant]
     Active Substance: METOCLOPRAMIDE HYDROCHLORIDE
     Indication: PROPHYLAXIS OF NAUSEA AND VOMITING
  35. TEDUGLUTIDE [Suspect]
     Active Substance: TEDUGLUTIDE
     Dosage: 2 MILLIGRAM (0.03 MILLIGRAM/KILOGRAM DAILY DOSE, 7 DOSES PER WEEK)
     Route: 065
     Dates: start: 20191031, end: 20191031
  36. TEDUGLUTIDE [Suspect]
     Active Substance: TEDUGLUTIDE
     Dosage: 2 MILLIGRAM (0.03 MILLIGRAM/KILOGRAM DAILY DOSE, 7 DOSES PER WEEK)
     Route: 065
     Dates: start: 20191101, end: 20191101
  37. TEDUGLUTIDE [Suspect]
     Active Substance: TEDUGLUTIDE
     Dosage: 2.9 MILLIGRAM (0.04 MILLIGRAM/KILOGRAM DAILY DOSE, 7 DOSES PER WEEK)
     Route: 065
     Dates: start: 20191104, end: 20191104
  38. TEDUGLUTIDE [Suspect]
     Active Substance: TEDUGLUTIDE
     Dosage: 2.9 MILLIGRAM (0.04 MILLIGRAM/KILOGRAM DAILY DOSE, 7 DOSES PER WEEK)
     Route: 065
     Dates: start: 20191105, end: 20191105
  39. KONAKION [Concomitant]
     Active Substance: PHYTONADIONE
     Indication: VITAMIN K DEFICIENCY
  40. TEDUGLUTIDE [Suspect]
     Active Substance: TEDUGLUTIDE
     Dosage: 1.7 MILLIGRAM (0.02 MILLIGRAM/KILOGRAM DAILY DOSE, 7 DOSES PER WEEK)
     Route: 065
     Dates: start: 20191030, end: 20191030
  41. TEDUGLUTIDE [Suspect]
     Active Substance: TEDUGLUTIDE
     Dosage: 1.7 MILLIGRAM (0.02 MILLIGRAM/KILOGRAM DAILY DOSE, 7 DOSES PER WEEK)
     Route: 065
     Dates: start: 20191030, end: 20191030
  42. TEDUGLUTIDE [Suspect]
     Active Substance: TEDUGLUTIDE
     Dosage: 2.4 MILLIGRAM (0.04 MILLIGRAM/KILOGRAM DAILY DOSE, 7 DOSES PER WEEK)
     Route: 065
     Dates: start: 20191102, end: 20191102
  43. TEDUGLUTIDE [Suspect]
     Active Substance: TEDUGLUTIDE
     Dosage: 2.9 MILLIGRAM (0.04 MILLIGRAM/KILOGRAM DAILY DOSE, 7 DOSES PER WEEK)
     Route: 065
     Dates: start: 20191104, end: 20191104
  44. TEDUGLUTIDE [Suspect]
     Active Substance: TEDUGLUTIDE
     Dosage: 2.9 MILLIGRAM (0.04 MILLIGRAM/KILOGRAM DAILY DOSE, 7 DOSES PER WEEK)
     Route: 065
     Dates: start: 20191105, end: 20191105
  45. ERYTHROCYTES [Concomitant]
     Active Substance: HUMAN RED BLOOD CELL
     Indication: ANAEMIA
  46. DOXAZOSIN [Concomitant]
     Active Substance: DOXAZOSIN MESYLATE
     Indication: HYPERTENSION

REACTIONS (4)
  - Hypertension [Not Recovered/Not Resolved]
  - Nephrolithiasis [Not Recovered/Not Resolved]
  - Headache [Recovered/Resolved]
  - COVID-19 [Recovered/Resolved]

NARRATIVE: CASE EVENT DATE: 202003
